FAERS Safety Report 18918093 (Version 1)
Quarter: 2021Q1

REPORT INFORMATION
  Report Type: Report from Study
  Country: None (occurrence: US)
  Receive Date: 20210220
  Receipt Date: 20210220
  Transmission Date: 20210420
  Serious: Yes (Other)
  Sender: FDA-Public Use
  Company Number: US-ABBVIE-21K-163-3780112-00

PATIENT

DRUGS (2)
  1. SYNTHROID [Suspect]
     Active Substance: LEVOTHYROXINE SODIUM
     Indication: PRODUCT USED FOR UNKNOWN INDICATION
     Route: 048
  2. SYNTHROID [Suspect]
     Active Substance: LEVOTHYROXINE SODIUM
     Route: 048
     Dates: start: 2021

REACTIONS (10)
  - Myxoedema [Unknown]
  - Confusional state [Unknown]
  - Fear [Unknown]
  - Hepatomegaly [Unknown]
  - Pneumonia [Unknown]
  - Hyperthyroidism [Unknown]
  - Cardiac disorder [Unknown]
  - Atrial fibrillation [Unknown]
  - Liver disorder [Unknown]
  - Near death experience [Unknown]

NARRATIVE: CASE EVENT DATE: 20201016
